FAERS Safety Report 12978401 (Version 1)
Quarter: 2016Q4

REPORT INFORMATION
  Report Type: Spontaneous
  Country: US (occurrence: US)
  Receive Date: 20161128
  Receipt Date: 20161128
  Transmission Date: 20170207
  Serious: No
  Sender: FDA-Public Use
  Company Number: US-PFIZER INC-2016543061

PATIENT
  Age: 69 Year
  Sex: Male

DRUGS (13)
  1. PROZAC [Interacting]
     Active Substance: FLUOXETINE HYDROCHLORIDE
     Dosage: UNK
  2. CYMBALTA [Interacting]
     Active Substance: DULOXETINE HYDROCHLORIDE
     Dosage: UNK
  3. TRINTELLIX [Interacting]
     Active Substance: VORTIOXETINE HYDROBROMIDE
     Dosage: UNK
  4. ELAVIL [Interacting]
     Active Substance: AMITRIPTYLINE HYDROCHLORIDE
     Dosage: UNK
  5. NORPRAMIN [Interacting]
     Active Substance: DESIPRAMINE HYDROCHLORIDE
     Dosage: UNK
  6. EFFEXOR XR [Suspect]
     Active Substance: VENLAFAXINE HYDROCHLORIDE
     Dosage: UNK
  7. ANAFRANIL [Interacting]
     Active Substance: CLOMIPRAMINE HYDROCHLORIDE
     Dosage: UNK
  8. LUVOX [Interacting]
     Active Substance: FLUVOXAMINE MALEATE
     Dosage: UNK
  9. REMERON [Interacting]
     Active Substance: MIRTAZAPINE
     Dosage: UNK
  10. SINEQUAN [Interacting]
     Active Substance: DOXEPIN HYDROCHLORIDE
     Dosage: UNK
  11. TOFRANIL [Interacting]
     Active Substance: IMIPRAMINE HYDROCHLORIDE
     Dosage: UNK
  12. PAMELOR [Interacting]
     Active Substance: NORTRIPTYLINE HYDROCHLORIDE
     Dosage: UNK
  13. PAXIL [Interacting]
     Active Substance: PAROXETINE HYDROCHLORIDE
     Dosage: UNK

REACTIONS (1)
  - Drug interaction [Unknown]
